FAERS Safety Report 24673221 (Version 1)
Quarter: 2024Q4

REPORT INFORMATION
  Report Type: Spontaneous
  Country: US (occurrence: US)
  Receive Date: 20241128
  Receipt Date: 20241128
  Transmission Date: 20250114
  Serious: No
  Sender: IBSA INSTITUT BIOCHIMIQUE
  Company Number: US-IBSA PHARMA INC.-2024IBS000437

PATIENT

DRUGS (1)
  1. TIROSINT [Suspect]
     Active Substance: LEVOTHYROXINE SODIUM
     Indication: Autoimmune thyroiditis
     Dosage: UNK, QD; 2 DOSES ON SATURDAY AND SUNDAY

REACTIONS (4)
  - Energy increased [Unknown]
  - Malaise [Unknown]
  - Abdominal pain upper [Unknown]
  - Product odour abnormal [Unknown]
